FAERS Safety Report 6269567-5 (Version None)
Quarter: 2009Q3

REPORT INFORMATION
  Report Type: 
  Country: None (occurrence: None)
  Receive Date: 20090714
  Receipt Date: 20090706
  Transmission Date: 20100115
  Serious: Yes (Death)
  Sender: FDA-Public Use
  Company Number: TCI2009A01312

PATIENT
  Age: 63 Year
  Sex: Male

DRUGS (4)
  1. ACTOS [Suspect]
     Indication: TYPE 2 DIABETES MELLITUS
     Dosage: 15 MG (15 MG, 1 D), PER ORAL
     Route: 048
     Dates: start: 20080322, end: 20080731
  2. ORAL ANTIDIABETICS [Concomitant]
  3. BIGUANIDES [Concomitant]
  4. ANGIOTENSTN II ANTAGONISTS [Concomitant]

REACTIONS (1)
  - SUDDEN DEATH [None]
